FAERS Safety Report 7724068-X (Version None)
Quarter: 2011Q3

REPORT INFORMATION
  Report Type: 
  Country: None (occurrence: None)
  Receive Date: 20110829
  Receipt Date: 20110818
  Transmission Date: 20111222
  Serious: Yes (Other)
  Sender: FDA-Public Use
  Company Number: GER/UKI/11/0020742

PATIENT
  Age: 47 Year
  Sex: Male

DRUGS (2)
  1. FLUOXETINE [Suspect]
     Indication: PRODUCT USED FOR UNKNOWN INDICATION
     Dosage: 40 MG, 1 IN 1 D
  2. CLOZAPINE [Suspect]
     Indication: SCHIZOPHRENIA
     Dosage: 450 MG, 2 IN 1 D, ORAL; 550 MG, D, ORAL; 500 MG, D, ORAL; 300 MG, 2 IN 1 D, ORAL
     Route: 048

REACTIONS (9)
  - WEIGHT DECREASED [None]
  - ABDOMINAL PAIN [None]
  - DECREASED APPETITE [None]
  - DIARRHOEA [None]
  - DRUG INTERACTION [None]
  - COUGH [None]
  - BLOOD ALKALINE PHOSPHATASE INCREASED [None]
  - LETHARGY [None]
  - HYPERHIDROSIS [None]
